FAERS Safety Report 4668380-X (Version None)
Quarter: 2005Q2

REPORT INFORMATION
  Report Type: 
  Country: None (occurrence: None)
  Receive Date: 20050523
  Receipt Date: 20040728
  Transmission Date: 20051028
  Serious: Yes (Other)
  Sender: FDA-Public Use
  Company Number: PHNU2004DE02665

PATIENT
  Sex: Male

DRUGS (2)
  1. AREDIA [Suspect]
     Indication: PROSTATE CANCER METASTATIC
  2. ZOMETA [Suspect]
     Indication: PROSTATE CANCER METASTATIC
     Dosage: 4 MG, QMO

REACTIONS (1)
  - OSTEONECROSIS [None]
